FAERS Safety Report 6289322-X (Version None)
Quarter: 2009Q3

REPORT INFORMATION
  Report Type: 
  Country: None (occurrence: None)
  Receive Date: 20090730
  Receipt Date: 20090722
  Transmission Date: 20100115
  Serious: Yes (Hospitalization)
  Sender: FDA-Public Use
  Company Number: US-BIOGENIDEC-2009BI019617

PATIENT
  Age: 59 Year
  Sex: Female

DRUGS (1)
  1. AVONEX [Suspect]
     Indication: MULTIPLE SCLEROSIS
     Route: 030
     Dates: start: 19980301

REACTIONS (6)
  - ABASIA [None]
  - ARTHRITIS [None]
  - COUGH [None]
  - FALL [None]
  - HEAD INJURY [None]
  - OEDEMA PERIPHERAL [None]
